FAERS Safety Report 5470682-4 (Version None)
Quarter: 2007Q3

REPORT INFORMATION
  Report Type: 
  Country: None (occurrence: None)
  Receive Date: 20070820
  Receipt Date: 20070511
  Transmission Date: 20080115
  Serious: No
  Sender: FDA-Public Use
  Company Number: WAES 0705USA02420

PATIENT
  Age: 80 Year
  Sex: Male

DRUGS (7)
  1. JANUVIA [Suspect]
     Indication: DIABETES MELLITUS
     Dosage: DAILY/PO
     Route: 048
     Dates: start: 20070416
  2. CAPEN [Concomitant]
  3. CARDURA [Concomitant]
  4. DIABETA [Concomitant]
  5. TRAVATAN [Concomitant]
  6. VASOTEC [Concomitant]
  7. VITAMINS (UNSPECIFIED) [Concomitant]

REACTIONS (2)
  - BLOOD GLUCOSE FLUCTUATION [None]
  - WRONG TECHNIQUE IN DRUG USAGE PROCESS [None]
